FAERS Safety Report 10961053 (Version 1)
Quarter: 2015Q1

REPORT INFORMATION
  Report Type: Spontaneous
  Country: US (occurrence: US)
  Receive Date: 20150327
  Receipt Date: 20150327
  Transmission Date: 20150721
  Serious: Yes (Death)
  Sender: FDA-Public Use
  Company Number: US-CIPLA LTD.-2015US02316

PATIENT

DRUGS (5)
  1. DIPHENHYDRAMINE [Suspect]
     Active Substance: DIPHENHYDRAMINE
  2. MIRTAZAPINE. [Suspect]
     Active Substance: MIRTAZAPINE
  3. RISPERIDONE. [Suspect]
     Active Substance: RISPERIDONE
  4. SALICYLATE [Suspect]
     Active Substance: SALICYLIC ACID
  5. VALPROIC ACID. [Suspect]
     Active Substance: VALPROIC ACID

REACTIONS (1)
  - Completed suicide [Fatal]
